FAERS Safety Report 8839983 (Version 1)
Quarter: 2012Q4

REPORT INFORMATION
  Report Type: Spontaneous
  Country: US (occurrence: None)
  Receive Date: 20121012
  Receipt Date: 20121012
  Transmission Date: 20130627
  Serious: Yes (Other)
  Sender: FDA-Public Use
  Company Number: None

PATIENT
  Age: 63 Year
  Sex: Male
  Weight: 81.65 kg

DRUGS (2)
  1. METRONIDAZOLE [Suspect]
     Dates: start: 20120815, end: 20120830
  2. CIPROFLOXACIN [Suspect]
     Dates: start: 20120815, end: 20120830

REACTIONS (2)
  - Arthralgia [None]
  - Pain in extremity [None]
